FAERS Safety Report 14249441 (Version 1)
Quarter: 2017Q4

REPORT INFORMATION
  Report Type: Spontaneous
  Country: US (occurrence: US)
  Receive Date: 20171204
  Receipt Date: 20171204
  Transmission Date: 20180321
  Serious: Yes (Life-Threatening, Hospitalization)
  Sender: FDA-Public Use
  Company Number: US-INGENUS PHARMACEUTICALS, LLC-RIC201711-000631

PATIENT
  Age: 58 Year
  Sex: Female

DRUGS (3)
  1. LIDOCAINE. [Suspect]
     Active Substance: LIDOCAINE
     Indication: ENDODONTIC PROCEDURE
  2. LIDOCAINE. [Suspect]
     Active Substance: LIDOCAINE
     Indication: TOOTH ABSCESS
  3. LIDOCAINE. [Suspect]
     Active Substance: LIDOCAINE
     Indication: CAROTID ARTERY DISSECTION

REACTIONS (9)
  - Headache [Unknown]
  - Lethargy [Unknown]
  - Product use in unapproved indication [Unknown]
  - Eyelid ptosis [Recovering/Resolving]
  - Neck pain [Unknown]
  - Carotid artery dissection [Unknown]
  - Nausea [Unknown]
  - Blood pressure increased [Recovering/Resolving]
  - Miosis [Recovering/Resolving]
